FAERS Safety Report 16089565 (Version 1)
Quarter: 2019Q1

REPORT INFORMATION
  Report Type: Spontaneous
  Country: ES (occurrence: ES)
  Receive Date: 20190319
  Receipt Date: 20190319
  Transmission Date: 20190418
  Serious: Yes (Hospitalization)
  Sender: FDA-Public Use
  Company Number: ES-TEVA-2019-ES-1025290

PATIENT
  Age: 59 Year
  Sex: Male

DRUGS (4)
  1. LEVOFLOXACINO (2791A) [Suspect]
     Active Substance: LEVOFLOXACIN
     Dates: start: 20190219, end: 20190226
  2. ETHAMBUTOL [Suspect]
     Active Substance: ETHAMBUTOL HYDROCHLORIDE
     Indication: PULMONARY TUBERCULOSIS
     Route: 048
     Dates: start: 20190219, end: 20190226
  3. ENOXAPARINA SODICA [Suspect]
     Active Substance: ENOXAPARIN SODIUM
     Route: 058
     Dates: start: 20190210, end: 20190222
  4. ISONIAZIDA/PIRIDOXINA [Suspect]
     Active Substance: ISONIAZID\PYRIDOXINE
     Indication: PULMONARY TUBERCULOSIS
     Dosage: 300MG + 50 MG EVERY 24H
     Route: 048
     Dates: start: 20190219, end: 20190222

REACTIONS (4)
  - Gingival bleeding [Unknown]
  - Thrombocytopenia [Unknown]
  - Anaemia [Unknown]
  - Melaena [Unknown]

NARRATIVE: CASE EVENT DATE: 20190222
